FAERS Safety Report 8263104-1 (Version None)
Quarter: 2012Q2

REPORT INFORMATION
  Report Type: 
  Country: None (occurrence: None)
  Receive Date: 20120405
  Receipt Date: 20120330
  Transmission Date: 20120825
  Serious: Yes (Hospitalization, Other)
  Sender: FDA-Public Use
  Company Number: JP-PFIZER INC-2012061561

PATIENT
  Age: 64 Year
  Sex: Male

DRUGS (6)
  1. LANSOPRAZOLE [Concomitant]
     Dosage: 15 MG, 1X/DAY
     Route: 048
  2. PREGABALIN [Suspect]
     Indication: PAIN
     Dosage: 75 MG, 2X/DAY
     Route: 048
     Dates: start: 20110704, end: 20110731
  3. CANDESARTAN CILEXETIL [Concomitant]
     Dosage: 8 MG, 1X/DAY
     Route: 048
  4. TAMSULOSIN HCL [Concomitant]
     Dosage: 0.2 MG, 1X/DAY
     Route: 048
  5. NORVASC [Concomitant]
     Dosage: 5 MG, 1X/DAY
     Route: 048
  6. URSO 250 [Concomitant]
     Dosage: 200 MG, 3X/DAY
     Route: 048

REACTIONS (1)
  - CEREBRAL HAEMORRHAGE [None]
